FAERS Safety Report 5326545-8 (Version None)
Quarter: 2007Q2

REPORT INFORMATION
  Report Type: 
  Country: None (occurrence: None)
  Receive Date: 20070510
  Receipt Date: 20070502
  Transmission Date: 20071010
  Serious: Yes (Death)
  Sender: FDA-Public Use
  Company Number: 2007RL000189

PATIENT
  Age: 52 Year
  Sex: Female

DRUGS (12)
  1. RYTHMOL [Suspect]
     Indication: ATRIAL FIBRILLATION
     Dosage: 425 MG ; BID; PO
     Route: 048
     Dates: start: 20060101, end: 20061001
  2. COUMADIN [Concomitant]
  3. ASPIRIN [Concomitant]
  4. CARDIZEM [Concomitant]
  5. FOLIC ACID [Concomitant]
  6. LASIX [Concomitant]
  7. POTASSIUM ACETATE [Concomitant]
  8. CRESTOR [Concomitant]
  9. COREG [Concomitant]
  10. PREVACID [Concomitant]
  11. METFORMIN HCL [Concomitant]
  12. WELLBUTRIN [Concomitant]

REACTIONS (8)
  - ABDOMINAL PAIN UPPER [None]
  - CORONARY ARTERY BYPASS [None]
  - FALL [None]
  - GAIT DISTURBANCE [None]
  - HYPERKALAEMIA [None]
  - HYPOTENSION [None]
  - RENAL FAILURE [None]
  - VOMITING [None]
